FAERS Safety Report 16724375 (Version 1)
Quarter: 2019Q3

REPORT INFORMATION
  Report Type: Report from Study
  Country: None (occurrence: US)
  Receive Date: 20190821
  Receipt Date: 20190821
  Transmission Date: 20191005
  Serious: Yes (Other)
  Sender: FDA-Public Use
  Company Number: US-ABBVIE-19K-163-2693320-00

PATIENT
  Age: 16 Year
  Sex: Female

DRUGS (2)
  1. HUMIRA [Suspect]
     Active Substance: ADALIMUMAB
     Dosage: CITRATE FREE
     Route: 058
     Dates: start: 201811, end: 2019
  2. HUMIRA [Suspect]
     Active Substance: ADALIMUMAB
     Indication: JUVENILE IDIOPATHIC ARTHRITIS
     Route: 058
     Dates: start: 201809, end: 2018

REACTIONS (10)
  - Suicidal ideation [Recovered/Resolved]
  - Skin irritation [Recovered/Resolved]
  - Insomnia [Not Recovered/Not Resolved]
  - Mood swings [Recovering/Resolving]
  - Rash pustular [Recovering/Resolving]
  - Hypophagia [Recovered/Resolved]
  - Agitation [Not Recovered/Not Resolved]
  - Abnormal behaviour [Unknown]
  - Dermatitis acneiform [Recovering/Resolving]
  - Insomnia [Recovered/Resolved]

NARRATIVE: CASE EVENT DATE: 201810
